FAERS Safety Report 8515708-6 (Version None)
Quarter: 2012Q3

REPORT INFORMATION
  Report Type: 
  Country: None (occurrence: None)
  Receive Date: 20120717
  Receipt Date: 20120712
  Transmission Date: 20120928
  Serious: Yes (Hospitalization, Other)
  Sender: FDA-Public Use
  Company Number: PHHY2009CA41678

PATIENT
  Sex: Male

DRUGS (4)
  1. SANDOSTATIN LAR [Suspect]
     Dosage: 40 MG, QMO
     Route: 030
  2. SANDOSTATIN LAR [Suspect]
     Dosage: 60 MG, QMO
     Route: 030
  3. SANDOSTATIN LAR [Suspect]
     Indication: METASTATIC CARCINOID TUMOUR
     Dosage: 30 MG, QMO
     Route: 030
     Dates: start: 20090316
  4. SANDOSTATIN LAR [Suspect]
     Dosage: 40 MG, QMO
     Route: 030

REACTIONS (4)
  - HYPERTENSION [None]
  - CONDITION AGGRAVATED [None]
  - HEART RATE DECREASED [None]
  - BLOOD PRESSURE INCREASED [None]
